FAERS Safety Report 12106219 (Version 1)
Quarter: 2016Q1

REPORT INFORMATION
  Report Type: Spontaneous
  Country: US (occurrence: US)
  Receive Date: 20160223
  Receipt Date: 20160223
  Transmission Date: 20160526
  Serious: Yes (Death, Hospitalization, Other)
  Sender: FDA-Public Use
  Company Number: US-CELGENEUS-USA-2015112502

PATIENT
  Age: 83 Year
  Sex: Female

DRUGS (14)
  1. RITUXAN [Concomitant]
     Active Substance: RITUXIMAB
     Indication: PRODUCT USED FOR UNKNOWN INDICATION
     Route: 065
  2. REVLIMID [Suspect]
     Active Substance: LENALIDOMIDE
     Indication: NON-HODGKIN^S LYMPHOMA
     Route: 048
     Dates: start: 20151012
  3. LEVAQUIN [Concomitant]
     Active Substance: LEVOFLOXACIN
     Route: 065
     Dates: start: 20151130
  4. LEVAQUIN [Concomitant]
     Active Substance: LEVOFLOXACIN
     Route: 065
     Dates: start: 20151207
  5. GM [Concomitant]
     Route: 065
     Dates: start: 20151229
  6. REVLIMID [Suspect]
     Active Substance: LENALIDOMIDE
     Route: 048
     Dates: start: 20151203, end: 20151207
  7. GM [Concomitant]
     Indication: NON-HODGKIN^S LYMPHOMA
     Route: 065
     Dates: start: 20151102
  8. GM [Concomitant]
     Route: 065
     Dates: start: 20151207
  9. GM [Concomitant]
     Route: 065
     Dates: start: 20151231
  10. LEVAQUIN [Concomitant]
     Active Substance: LEVOFLOXACIN
     Indication: NON-HODGKIN^S LYMPHOMA
     Route: 065
     Dates: start: 20151102
  11. GM [Concomitant]
     Route: 065
     Dates: start: 20151130
  12. LEVAQUIN [Concomitant]
     Active Substance: LEVOFLOXACIN
     Route: 065
     Dates: start: 20151229
  13. REVLIMID [Suspect]
     Active Substance: LENALIDOMIDE
     Route: 048
     Dates: start: 20151105
  14. LEVAQUIN [Concomitant]
     Active Substance: LEVOFLOXACIN
     Route: 065
     Dates: start: 20151231

REACTIONS (4)
  - White blood cell count decreased [Unknown]
  - Bone marrow failure [Unknown]
  - Neutropenia [Unknown]
  - Asthenia [Fatal]

NARRATIVE: CASE EVENT DATE: 201511
